FAERS Safety Report 9995705 (Version 2)
Quarter: 2014Q2

REPORT INFORMATION
  Report Type: Report from Study
  Country: JP (occurrence: JP)
  Receive Date: 20140311
  Receipt Date: 20140624
  Transmission Date: 20141212
  Serious: Yes (Death, Other)
  Sender: FDA-Public Use
  Company Number: JP-ROCHE-1359157

PATIENT
  Age: 55 Year
  Sex: Male
  Weight: 85 kg

DRUGS (2)
  1. METHOXY POLYETHYLENE GLYCOL-EPOETIN BETA [Suspect]
     Indication: NEPHROGENIC ANAEMIA
     Route: 042
     Dates: start: 20110905, end: 20111003
  2. OXAROL [Concomitant]
     Route: 042
     Dates: end: 20120711

REACTIONS (6)
  - Myocardial infarction [Fatal]
  - Joint injury [Unknown]
  - Joint injury [Unknown]
  - Subcutaneous haematoma [Unknown]
  - Skin abrasion [Unknown]
  - Haemoglobin decreased [Unknown]
